FAERS Safety Report 21999856 (Version 1)
Quarter: 2023Q1

REPORT INFORMATION
  Report Type: Spontaneous
  Country: US (occurrence: US)
  Receive Date: 20230216
  Receipt Date: 20230216
  Transmission Date: 20230417
  Serious: No
  Sender: FDA-Public Use
  Company Number: US-BAYER-2023A013452

PATIENT
  Age: 89 Year
  Sex: Male

DRUGS (4)
  1. MIRALAX [Suspect]
     Active Substance: POLYETHYLENE GLYCOL 3350
     Indication: Constipation
     Route: 048
     Dates: start: 20230131, end: 20230131
  2. MIRALAX [Suspect]
     Active Substance: POLYETHYLENE GLYCOL 3350
     Indication: Gastrointestinal disorder
  3. ANTIACID [CALCIUM CARBONATE;MAGNESIUM CARBONATE;SODIUM BICARBONATE [Concomitant]
  4. GAS RELIEF [Concomitant]
     Active Substance: DIMETHICONE

REACTIONS (1)
  - Wrong technique in product usage process [Recovered/Resolved]

NARRATIVE: CASE EVENT DATE: 20230131
